FAERS Safety Report 7741567-5 (Version None)
Quarter: 2011Q3

REPORT INFORMATION
  Report Type: 
  Country: None (occurrence: None)
  Receive Date: 20110909
  Receipt Date: 20110829
  Transmission Date: 20111222
  Serious: Yes (Hospitalization)
  Sender: FDA-Public Use
  Company Number: JP-ASTRAZENECA-2011SE53222

PATIENT
  Age: 67 Year
  Sex: Male

DRUGS (5)
  1. MEROPENEM [Suspect]
     Indication: INFECTION
     Route: 042
     Dates: start: 20110813
  2. PICILLIBACTA [Suspect]
     Route: 042
  3. ASPIRIN [Concomitant]
     Route: 048
  4. LIPITOR [Concomitant]
     Route: 048
     Dates: start: 20110813
  5. LASOPRAN OD [Concomitant]
     Route: 048

REACTIONS (1)
  - INTERSTITIAL LUNG DISEASE [None]
